FAERS Safety Report 25926004 (Version 1)
Quarter: 2025Q4

REPORT INFORMATION
  Report Type: Spontaneous
  Country: US (occurrence: None)
  Receive Date: 20251015
  Receipt Date: 20251015
  Transmission Date: 20260117
  Serious: Yes (Hospitalization)
  Sender: FDA-CTU
  Company Number: None

PATIENT
  Sex: Female

DRUGS (1)
  1. HUMIRA [Suspect]
     Active Substance: ADALIMUMAB
     Indication: Inflammatory bowel disease
     Dosage: 40 ML EVERY 14 DAYS SUBCUTANEOUS?
     Route: 058
     Dates: start: 20250709

REACTIONS (6)
  - Product storage error [None]
  - Poor quality product administered [None]
  - Dyspnoea [None]
  - Nausea [None]
  - Injection site warmth [None]
  - Injection site pain [None]
